FAERS Safety Report 4275897-9 (Version None)
Quarter: 2004Q1

REPORT INFORMATION
  Report Type: 
  Country: None (occurrence: None)
  Receive Date: 20040121
  Receipt Date: 20030225
  Transmission Date: 20041129
  Serious: No
  Sender: FDA-Public Use
  Company Number: US-GLAXOSMITHKLINE-A0398045A

PATIENT
  Age: 21 Year
  Sex: Female
  Weight: 60.5 kg

DRUGS (2)
  1. VALTREX [Suspect]
     Indication: HERPES SIMPLEX
     Dosage: 500MG TWICE PER DAY
     Route: 048
     Dates: start: 20030221, end: 20030224
  2. DIFLUCAN [Concomitant]
     Dosage: 150MG PER DAY
     Route: 048
     Dates: start: 20030221, end: 20030221

REACTIONS (2)
  - ADVERSE DRUG REACTION [None]
  - TACHYCARDIA [None]
